FAERS Safety Report 25362256 (Version 1)
Quarter: 2025Q2

REPORT INFORMATION
  Report Type: Spontaneous
  Country: DE (occurrence: DE)
  Receive Date: 20250527
  Receipt Date: 20250527
  Transmission Date: 20250717
  Serious: Yes (Hospitalization, Other)
  Sender: BAYER HEALTHCARE PHARMACEUTICALS INC.
  Company Number: DE-BAYER-2025A049414

PATIENT
  Age: 39 Year
  Sex: Female

DRUGS (1)
  1. KYLEENA [Suspect]
     Active Substance: LEVONORGESTREL
     Indication: Contraception
     Dosage: 17.5?G/DAY
     Route: 015
     Dates: start: 202201, end: 2024

REACTIONS (12)
  - Sepsis [Recovered/Resolved]
  - Salpingo-oophoritis [None]
  - Pneumonia [None]
  - Intervertebral discitis [None]
  - Ascites [None]
  - Influenza like illness [None]
  - Pseudoradicular syndrome [None]
  - Oropharyngeal pain [None]
  - Rhinorrhoea [None]
  - Pyrexia [None]
  - Flatulence [None]
  - Back pain [None]

NARRATIVE: CASE EVENT DATE: 20240101
